FAERS Safety Report 13335700 (Version 2)
Quarter: 2017Q2

REPORT INFORMATION
  Report Type: Spontaneous
  Country: US (occurrence: US)
  Receive Date: 20170314
  Receipt Date: 20170418
  Transmission Date: 20170830
  Serious: No
  Sender: FDA-Public Use
  Company Number: GXBR2017US001027

PATIENT
  Age: 64 Year
  Sex: Female
  Weight: 79.82 kg

DRUGS (5)
  1. LOVASTATIN. [Concomitant]
     Active Substance: LOVASTATIN
     Dosage: UNK DF, UNK
     Route: 065
  2. THYROID [Concomitant]
     Active Substance: LEVOTHYROXINE\LIOTHYRONINE
     Indication: HYPOTHYROIDISM
     Dosage: UNK DF, UNK
     Route: 065
  3. URSODIOL. [Concomitant]
     Active Substance: URSODIOL
     Dosage: UNK DF, UNK
     Route: 065
  4. FLUTICASONE. [Concomitant]
     Active Substance: FLUTICASONE
     Indication: CHRONIC SINUSITIS
     Dosage: UNK DF, UNK
     Route: 065
  5. AMOXICILLIN AND CLAVULANATE POTASSIUM TABLETS USP [Suspect]
     Active Substance: AMOXICILLIN\CLAVULANATE POTASSIUM
     Indication: SINUSITIS
     Dosage: 875MG AMOXICILLIN AND 125MG CLAVULANATE BID
     Route: 048
     Dates: start: 20170302, end: 20170304

REACTIONS (3)
  - Abdominal pain upper [Recovered/Resolved]
  - Sinus congestion [Recovering/Resolving]
  - Dyspnoea [Recovered/Resolved]

NARRATIVE: CASE EVENT DATE: 20170302
